FAERS Safety Report 18511612 (Version 2)
Quarter: 2020Q4

REPORT INFORMATION
  Report Type: Report from Study
  Country: US (occurrence: US)
  Receive Date: 20201117
  Receipt Date: 20201226
  Transmission Date: 20210114
  Serious: Yes (Other)
  Sender: FDA-Public Use
  Company Number: NVSC2020US302548

PATIENT
  Sex: Male

DRUGS (1)
  1. ENTRESTO [Suspect]
     Active Substance: SACUBITRIL\VALSARTAN
     Indication: PRODUCT USED FOR UNKNOWN INDICATION
     Dosage: UNK UNK, UNKNOWN
     Route: 048

REACTIONS (7)
  - Hypotension [Unknown]
  - Blood sodium decreased [Unknown]
  - Haemoglobin abnormal [Unknown]
  - Dyspnoea [Unknown]
  - Ejection fraction abnormal [Unknown]
  - Diabetes mellitus [Unknown]
  - Dizziness [Unknown]
